FAERS Safety Report 8361245-1 (Version None)
Quarter: 2012Q2

REPORT INFORMATION
  Report Type: 
  Country: None (occurrence: None)
  Receive Date: 20120515
  Receipt Date: 20120507
  Transmission Date: 20120825
  Serious: Yes (Death)
  Sender: FDA-Public Use
  Company Number: US-MYLANLABS-2011S1006506

PATIENT
  Age: 46 Year
  Sex: Male
  Weight: 87.54 kg

DRUGS (2)
  1. TRAMADOL HYDROCHLORIDE [Suspect]
  2. FENTANYL-100 [Suspect]
     Indication: BACK PAIN
     Dates: end: 20090319

REACTIONS (1)
  - TOXICITY TO VARIOUS AGENTS [None]
